FAERS Safety Report 6973799-8 (Version None)
Quarter: 2010Q3

REPORT INFORMATION
  Report Type: 
  Country: None (occurrence: None)
  Receive Date: 20100909
  Receipt Date: 20100907
  Transmission Date: 20110219
  Serious: Yes (Other)
  Sender: FDA-Public Use
  Company Number: A0879860A

PATIENT
  Age: 47 Year
  Sex: Female

DRUGS (2)
  1. LAMICTAL XR [Suspect]
     Dosage: 100MG PER DAY
     Route: 048
     Dates: start: 20100801, end: 20100903
  2. NO CONCURRENT MEDICATION [Concomitant]

REACTIONS (5)
  - DEPRESSED LEVEL OF CONSCIOUSNESS [None]
  - FEELING ABNORMAL [None]
  - LYMPHADENOPATHY [None]
  - PARAESTHESIA [None]
  - PERSONALITY CHANGE [None]
